FAERS Safety Report 8000408-1 (Version None)
Quarter: 2011Q4

REPORT INFORMATION
  Report Type: 
  Country: None (occurrence: None)
  Receive Date: 20111222
  Receipt Date: 20101130
  Transmission Date: 20120403
  Serious: No
  Sender: FDA-Public Use
  Company Number: US-BRISTOL-MYERS SQUIBB COMPANY-15413768

PATIENT
  Age: 62 Year
  Sex: Female
  Weight: 61 kg

DRUGS (5)
  1. LEVOTHYROXINE SODIUM [Concomitant]
  2. ROBAXIN [Concomitant]
  3. RITALIN [Concomitant]
  4. PRAVACHOL [Suspect]
     Dosage: 20MG IN NOV09 THEN INCREASED TO 40MG IN MAY10 AND STOPPED ON 02OCT10
     Dates: start: 20091101, end: 20101002
  5. METHADONE HCL [Concomitant]

REACTIONS (1)
  - ALOPECIA [None]
